FAERS Safety Report 6569859-6 (Version None)
Quarter: 2010Q1

REPORT INFORMATION
  Report Type: 
  Country: None (occurrence: None)
  Receive Date: 20100204
  Receipt Date: 20100126
  Transmission Date: 20100710
  Serious: Yes (Other)
  Sender: FDA-Public Use
  Company Number: US-BAXTER-2009BH010888

PATIENT
  Age: 47 Year
  Sex: Female

DRUGS (13)
  1. ENDOXAN BAXTER [Suspect]
     Indication: MULTIPLE SCLEROSIS
     Route: 065
     Dates: end: 20090401
  2. ENDOXAN BAXTER [Suspect]
     Indication: OFF LABEL USE
     Route: 065
     Dates: end: 20090401
  3. INTERFERON BETA [Suspect]
     Indication: MULTIPLE SCLEROSIS
     Route: 058
     Dates: start: 20090123, end: 20090413
  4. CELEXA [Suspect]
     Indication: DEPRESSION
     Route: 065
     Dates: end: 20090401
  5. GABAPENTIN [Suspect]
     Indication: PAIN
     Route: 065
     Dates: end: 20090401
  6. KLONOPIN [Suspect]
     Indication: ANXIETY
     Route: 065
     Dates: end: 20090401
  7. KLONOPIN [Suspect]
     Indication: SLEEP DISORDER
     Route: 065
     Dates: end: 20090401
  8. ACYCLOVIR [Concomitant]
     Indication: MULTIPLE SCLEROSIS
     Route: 065
     Dates: end: 20090401
  9. VITAMIN D [Concomitant]
     Indication: SUPPLEMENTATION THERAPY
     Route: 065
     Dates: end: 20090401
  10. OMEGA-6 FATTY ACIDS [Concomitant]
     Indication: SUPPLEMENTATION THERAPY
     Route: 065
     Dates: end: 20090401
  11. SOLU-MEDROL [Concomitant]
     Indication: MULTIPLE SCLEROSIS
     Route: 065
     Dates: start: 20090501
  12. MOTRIN [Concomitant]
     Indication: PREMEDICATION
     Route: 065
     Dates: start: 20090101, end: 20090401
  13. CO-TYLENOL [Concomitant]
     Indication: PREMEDICATION
     Route: 065
     Dates: start: 20090101, end: 20090401

REACTIONS (4)
  - AUTOIMMUNE HEPATITIS [None]
  - CONDITION AGGRAVATED [None]
  - HEPATITIS [None]
  - HYPOAESTHESIA [None]
